FAERS Safety Report 17557094 (Version 1)
Quarter: 2020Q1

REPORT INFORMATION
  Report Type: Spontaneous
  Country: US (occurrence: US)
  Receive Date: 20200318
  Receipt Date: 20200318
  Transmission Date: 20200409
  Serious: No
  Sender: FDA-Public Use
  Company Number: US-TEVA-2020-US-1201110

PATIENT
  Sex: Female

DRUGS (1)
  1. CLONIDINE HYDROCHLORIDE TEVA/ACTAVIS [Suspect]
     Active Substance: CLONIDINE HYDROCHLORIDE
     Route: 065

REACTIONS (4)
  - Epistaxis [Unknown]
  - Product availability issue [Unknown]
  - Hypertension [Unknown]
  - Therapy cessation [Unknown]

NARRATIVE: CASE EVENT DATE: 20200224
